FAERS Safety Report 9286065 (Version 1)
Quarter: 2013Q2

REPORT INFORMATION
  Report Type: Spontaneous
  Country: US (occurrence: None)
  Receive Date: 20130510
  Receipt Date: 20130510
  Transmission Date: 20140414
  Serious: Yes (Hospitalization)
  Sender: FDA-Public Use
  Company Number: None

PATIENT
  Age: 77 Year
  Sex: Female
  Weight: 82.3 kg

DRUGS (11)
  1. WARFARIN [Suspect]
     Indication: ATRIAL FIBRILLATION
     Dosage: ONCE DAILY,  CHRONIC
     Route: 048
  2. ASPIRIN [Suspect]
     Indication: ATRIAL FIBRILLATION
     Dosage: 81 MG M/ W/ F ONCE DAILY PO
     Route: 048
  3. HYDROCODONE/ SPIRONOLACTONE [Concomitant]
  4. METOPROLOLSUCCINATE [Concomitant]
  5. COUMADIN [Concomitant]
  6. MULTIVITAMIN [Concomitant]
  7. FISH OIL SUPPLEMENT [Concomitant]
  8. NIACIN [Concomitant]
  9. ASPIRIN [Concomitant]
  10. ALEVE [Concomitant]
  11. Z-PACK [Concomitant]

REACTIONS (1)
  - Gastrointestinal haemorrhage [None]
